FAERS Safety Report 15821348 (Version 1)
Quarter: 2019Q1

REPORT INFORMATION
  Report Type: Spontaneous
  Country: US (occurrence: US)
  Receive Date: 20190112
  Receipt Date: 20190112
  Transmission Date: 20190417
  Serious: No
  Sender: FDA-Public Use
  Company Number: None

PATIENT
  Age: 36 Year
  Sex: Female
  Weight: 45 kg

DRUGS (2)
  1. DEXTROAMPHET SACCHARAT, AMPHET ASPARTATE, DEXTROAMPHET SULFATE AND AMPHET SULFAT [Suspect]
     Active Substance: AMPHETAMINE ASPARTATE\AMPHETAMINE SULFATE\DEXTROAMPHETAMINE SACCHARATE\DEXTROAMPHETAMINE SULFATE
     Indication: ATTENTION DEFICIT/HYPERACTIVITY DISORDER
     Dosage: ?          QUANTITY:1 TABLET(S);?
     Route: 048
  2. ZYRTEC (GENERIC) [Concomitant]

REACTIONS (14)
  - Pain in jaw [None]
  - Influenza [None]
  - Product quality issue [None]
  - Anxiety [None]
  - Depressed level of consciousness [None]
  - Panic attack [None]
  - Diarrhoea [None]
  - Heart rate increased [None]
  - Bruxism [None]
  - Muscle tightness [None]
  - Headache [None]
  - Feeling of body temperature change [None]
  - Myocardial infarction [None]
  - Nervousness [None]

NARRATIVE: CASE EVENT DATE: 20190111
